FAERS Safety Report 7591877-X (Version None)
Quarter: 2011Q3

REPORT INFORMATION
  Report Type: 
  Country: None (occurrence: None)
  Receive Date: 20110706
  Receipt Date: 20110620
  Transmission Date: 20111222
  Serious: Yes (Other)
  Sender: FDA-Public Use
  Company Number: US-BAYER-2011-038772

PATIENT
  Age: 39 Year
  Sex: Female

DRUGS (7)
  1. IBUPROFEN [Concomitant]
     Dosage: 600 MG, UNK
  2. YASMIN [Suspect]
     Indication: CONTRACEPTION
     Dosage: UNK
     Dates: start: 20060101, end: 20090101
  3. YAZ [Suspect]
     Indication: CONTRACEPTION
     Dosage: UNK
     Dates: start: 20060101, end: 20090101
  4. OXYCODONE HCL AND ACETAMINOPHEN [Concomitant]
     Dosage: UNK UNK, Q4HR
  5. BUTALBITAL ACETAMINOPHEN AND CAFFEINE [Concomitant]
     Dosage: UNK UNK, Q4HR
  6. VIGAMOX [Concomitant]
     Dosage: UNK UNK, TID
     Route: 047
  7. CENTRUM SILVER [Concomitant]

REACTIONS (4)
  - GALLBLADDER DISORDER [None]
  - PAIN [None]
  - ABDOMINAL PAIN [None]
  - CHOLECYSTITIS CHRONIC [None]
